FAERS Safety Report 20669237 (Version 2)
Quarter: 2022Q2

REPORT INFORMATION
  Report Type: Report from Study
  Country: MX (occurrence: MX)
  Receive Date: 20220404
  Receipt Date: 20220415
  Transmission Date: 20220721
  Serious: Yes (Other)
  Sender: FDA-Public Use
  Company Number: MX-NOVARTISPH-NVSC2022MX075707

PATIENT
  Age: 79 Year
  Sex: Male
  Weight: 89 kg

DRUGS (2)
  1. EXFORGE [Suspect]
     Active Substance: AMLODIPINE BESYLATE\VALSARTAN
     Indication: Hypertension
     Dosage: 1 DOSAGE FORM, QD, STARTED 8 YEARS AGO
     Route: 048
  2. EXFORGE [Suspect]
     Active Substance: AMLODIPINE BESYLATE\VALSARTAN
     Dosage: 1 DOSAGE FORM, QD, STARTED 4 TO 6 YEARS AGO
     Route: 048

REACTIONS (5)
  - Pulmonary fibrosis [Not Recovered/Not Resolved]
  - Lung disorder [Unknown]
  - Pneumonitis [Unknown]
  - Pain [Not Recovered/Not Resolved]
  - Back pain [Unknown]

NARRATIVE: CASE EVENT DATE: 20211011
